FAERS Safety Report 25711273 (Version 1)
Quarter: 2025Q3

REPORT INFORMATION
  Report Type: Spontaneous
  Country: EU (occurrence: EU)
  Receive Date: 20250821
  Receipt Date: 20250821
  Transmission Date: 20251021
  Serious: Yes (Hospitalization)
  Sender: MYLAN
  Company Number: None

PATIENT
  Age: 79 Year
  Sex: Male
  Weight: 71.5 kg

DRUGS (7)
  1. DILTIAZEM [Suspect]
     Active Substance: DILTIAZEM
     Indication: Atrial fibrillation
     Dosage: 200 MILLIGRAM, QD (1 PIECE ONCE A DAY)
     Dates: start: 20231107
  2. DILTIAZEM [Suspect]
     Active Substance: DILTIAZEM
     Indication: Hypertension
  3. PANTOPRAZOLE SODIUM [Concomitant]
     Active Substance: PANTOPRAZOLE SODIUM
     Dosage: 40 MILLIGRAM, QD (1X PER DAY 40 MG)
  4. METHOTREXATE [Concomitant]
     Active Substance: METHOTREXATE
  5. MELOXICAM [Concomitant]
     Active Substance: MELOXICAM
  6. CLOPIDOGREL [Concomitant]
     Active Substance: CLOPIDOGREL BISULFATE
  7. ROSUVASTATIN [Concomitant]
     Active Substance: ROSUVASTATIN

REACTIONS (6)
  - Pallor [Recovering/Resolving]
  - Dizziness [Recovering/Resolving]
  - Nausea [Recovering/Resolving]
  - Syncope [Recovering/Resolving]
  - Hypotension [Recovering/Resolving]
  - Bradycardia [Recovering/Resolving]
